FAERS Safety Report 8029970-X (Version None)
Quarter: 2012Q1

REPORT INFORMATION
  Report Type: 
  Country: None (occurrence: None)
  Receive Date: 20120109
  Receipt Date: 20111229
  Transmission Date: 20120608
  Serious: Yes (Other)
  Sender: FDA-Public Use
  Company Number: FR-ASTELLAS-2010EU006841

PATIENT
  Sex: Male

DRUGS (2)
  1. TACROLIMUS [Suspect]
     Indication: DERMATITIS ATOPIC
     Dosage: 0.03 %, PRN
     Route: 061
     Dates: start: 20021115
  2. TACROLIMUS [Suspect]
     Dosage: 0.1 %, BID
     Route: 061
     Dates: start: 20010101, end: 20030601

REACTIONS (2)
  - LYMPHADENOPATHY [None]
  - OFF LABEL USE [None]
